FAERS Safety Report 13064199 (Version 1)
Quarter: 2016Q4

REPORT INFORMATION
  Report Type: Report from Study
  Country: BR (occurrence: BR)
  Receive Date: 20161227
  Receipt Date: 20161227
  Transmission Date: 20170207
  Serious: Yes (Other)
  Sender: FDA-Public Use
  Company Number: PHHY2016BR079754

PATIENT
  Age: 44 Year
  Sex: Female
  Weight: 77 kg

DRUGS (4)
  1. ZOLADEX [Concomitant]
     Active Substance: GOSERELIN ACETATE
     Indication: BREAST CANCER
     Dosage: UNK UNK, QMO (1 INJECTION A MONTH)
     Route: 058
     Dates: start: 201604
  2. AFINITOR [Suspect]
     Active Substance: EVEROLIMUS
     Indication: BREAST CANCER METASTATIC
     Dosage: 10 MG, QD (1 TABLET A DAY)
     Route: 048
     Dates: start: 201604
  3. ADALAT [Concomitant]
     Active Substance: NIFEDIPINE
     Indication: HYPERTENSION
     Dosage: 1 DF, QD
     Route: 048
     Dates: start: 2012
  4. AROMASIN [Concomitant]
     Active Substance: EXEMESTANE
     Indication: BREAST CANCER
     Dosage: 25 MG, QD
     Route: 048
     Dates: start: 201604

REACTIONS (26)
  - Eating disorder [Not Recovered/Not Resolved]
  - Weight increased [Recovering/Resolving]
  - Dry skin [Not Recovered/Not Resolved]
  - Burning sensation [Recovering/Resolving]
  - Skin burning sensation [Not Recovered/Not Resolved]
  - Aphthous ulcer [Not Recovered/Not Resolved]
  - Lip swelling [Recovering/Resolving]
  - Pruritus [Recovering/Resolving]
  - Visual impairment [Unknown]
  - Feeding disorder [Recovering/Resolving]
  - Blood cholesterol increased [Not Recovered/Not Resolved]
  - Hyperglycaemia [Not Recovered/Not Resolved]
  - Mastication disorder [Recovering/Resolving]
  - Anxiety [Unknown]
  - Stomatitis [Unknown]
  - Swelling [Recovering/Resolving]
  - Activities of daily living impaired [Unknown]
  - Swelling [Unknown]
  - Feeling hot [Recovering/Resolving]
  - Nervousness [Not Recovered/Not Resolved]
  - Fatigue [Recovering/Resolving]
  - Skin discolouration [Not Recovered/Not Resolved]
  - Erythema [Unknown]
  - Insomnia [Not Recovered/Not Resolved]
  - Joint swelling [Not Recovered/Not Resolved]
  - Disturbance in attention [Not Recovered/Not Resolved]

NARRATIVE: CASE EVENT DATE: 201604
